FAERS Safety Report 18625368 (Version 3)
Quarter: 2021Q3

REPORT INFORMATION
  Report Type: Spontaneous
  Country: US (occurrence: US)
  Receive Date: 20201216
  Receipt Date: 20210917
  Transmission Date: 20211014
  Serious: No
  Sender: FDA-Public Use
  Company Number: US-CATALYST PHARMACEUTICALS, INC-2020CAT00530

PATIENT
  Age: 64 Year
  Sex: Female
  Weight: 54.42 kg

DRUGS (18)
  1. FIRDAPSE [Suspect]
     Active Substance: AMIFAMPRIDINE PHOSPHATE
     Dosage: 10 MG, 3X/DAY
     Route: 048
     Dates: start: 20200921, end: 2020
  2. CLONAZEPAM. [Concomitant]
     Active Substance: CLONAZEPAM
     Dosage: 0.5 MG, AS NEEDED
  3. MESTINON [Concomitant]
     Active Substance: PYRIDOSTIGMINE BROMIDE
     Dosage: 60 MG, 3X/DAY
     Dates: start: 202101
  4. PROBIOTIC [Concomitant]
     Active Substance: PROBIOTICS NOS
  5. FIRDAPSE [Suspect]
     Active Substance: AMIFAMPRIDINE PHOSPHATE
     Dosage: 15 MG, 3X/DAY
     Route: 048
     Dates: start: 2020, end: 20201010
  6. LEVOTHYROXINE. [Concomitant]
     Active Substance: LEVOTHYROXINE
     Dosage: 88 ?G
  7. CRANBERRY PILL [Concomitant]
     Active Substance: CRANBERRY
     Dosage: ^OCCASIONALLY, IF I NEED IT^
  8. FIRDAPSE [Suspect]
     Active Substance: AMIFAMPRIDINE PHOSPHATE
     Dosage: ^6 A DAY TO 8 A DAY^
     Route: 048
     Dates: start: 20210225, end: 2021
  9. MULTIVITAMIN [Concomitant]
     Active Substance: VITAMINS
  10. FIRDAPSE [Suspect]
     Active Substance: AMIFAMPRIDINE PHOSPHATE
     Dosage: 20 MG, 3X/DAY
     Route: 048
     Dates: start: 2020, end: 2020
  11. FIRDAPSE [Suspect]
     Active Substance: AMIFAMPRIDINE PHOSPHATE
     Dosage: 4X/DAY (15 MG AT 7 AM, 20 MG AT 11 AM, 20 MG AT 3 PM, AND 15 MG AT 7 PM)
     Route: 048
     Dates: start: 2021
  12. FIRDAPSE [Suspect]
     Active Substance: AMIFAMPRIDINE PHOSPHATE
     Indication: MYASTHENIC SYNDROME
     Dosage: 10 MG, 2X/DAY
     Route: 048
     Dates: start: 20200918, end: 20200920
  13. FIRDAPSE [Suspect]
     Active Substance: AMIFAMPRIDINE PHOSPHATE
     Dosage: 20 MG, 4X/DAY
     Route: 048
  14. VITAMIN D [Concomitant]
     Active Substance: VITAMIN D NOS
  15. FIRDAPSE [Suspect]
     Active Substance: AMIFAMPRIDINE PHOSPHATE
     Dosage: 20 MG, 3X/DAY 5 HOURS APART
     Route: 048
     Dates: start: 20201011
  16. FIRDAPSE [Suspect]
     Active Substance: AMIFAMPRIDINE PHOSPHATE
     Dosage: 4X/DAY (15 MG AT 7 AM, 20 MG AT 11 AM, 20 MG AT 3 PM, AND 15 MG AT 7 PM)
     Route: 048
     Dates: start: 2021, end: 2021
  17. BIOTIN [Concomitant]
     Active Substance: BIOTIN
     Dosage: 10 MG, 1X/DAY
  18. MELATONIN [Concomitant]
     Active Substance: MELATONIN
     Dosage: 500 ?G, 1X/DAY AT BEDTIME

REACTIONS (9)
  - Therapeutic product effect incomplete [Not Recovered/Not Resolved]
  - Urinary tract infection [Not Recovered/Not Resolved]
  - Hepatic enzyme increased [Not Recovered/Not Resolved]
  - Renal cyst [Not Recovered/Not Resolved]
  - Eyelid function disorder [Recovering/Resolving]
  - Intentional product use issue [Recovered/Resolved]
  - Limb discomfort [Recovering/Resolving]
  - Musculoskeletal discomfort [Recovering/Resolving]
  - Weight decreased [Unknown]

NARRATIVE: CASE EVENT DATE: 2020
